FAERS Safety Report 7436663-6 (Version None)
Quarter: 2011Q2

REPORT INFORMATION
  Report Type: 
  Country: None (occurrence: None)
  Receive Date: 20110426
  Receipt Date: 20110418
  Transmission Date: 20111010
  Serious: Yes (Other)
  Sender: FDA-Public Use
  Company Number: US-JNJFOC-20110408589

PATIENT
  Sex: Female

DRUGS (1)
  1. LEVAQUIN [Suspect]
     Indication: PRODUCT USED FOR UNKNOWN INDICATION
     Route: 065

REACTIONS (8)
  - DIARRHOEA [None]
  - RASH PUSTULAR [None]
  - HAEMATOCHEZIA [None]
  - BURNING SENSATION [None]
  - ABDOMINAL PAIN UPPER [None]
  - LIP PAIN [None]
  - SKIN HYPERPIGMENTATION [None]
  - LIP DISCOLOURATION [None]
